FAERS Safety Report 8071577-2 (Version None)
Quarter: 2012Q1

REPORT INFORMATION
  Report Type: 
  Country: None (occurrence: None)
  Receive Date: 20120125
  Receipt Date: 20120110
  Transmission Date: 20120608
  Serious: Yes (Other)
  Sender: FDA-Public Use
  Company Number: IE-JNJFOC-20110608394

PATIENT
  Sex: Male

DRUGS (4)
  1. SIMPONI [Suspect]
     Indication: RHEUMATOID ARTHRITIS
     Route: 058
     Dates: start: 20110525
  2. METHOTREXATE [Concomitant]
  3. FOLIC ACID [Concomitant]
  4. PREGNENOLONE [Concomitant]
     Indication: RHEUMATOID ARTHRITIS

REACTIONS (1)
  - HERPES ZOSTER [None]
